FAERS Safety Report 20978943 (Version 3)
Quarter: 2023Q2

REPORT INFORMATION
  Report Type: Report from Study
  Country: GB (occurrence: None)
  Receive Date: 20220619
  Receipt Date: 20230621
  Transmission Date: 20230721
  Serious: Yes (Hospitalization)
  Sender: FDA-Public Use
  Company Number: GB-ROCHE-3115597

PATIENT
  Age: 75 Year
  Sex: Female
  Weight: 95 kg

DRUGS (4)
  1. ATEZOLIZUMAB [Suspect]
     Active Substance: ATEZOLIZUMAB
     Indication: Pleural mesothelioma malignant
     Dosage: THE LAST ADMINISTERED DOSE BEFORE THE EVENT ADRENAL INSUFFIENCY STARTED WAS ON 25/MAY/2022
     Route: 041
     Dates: start: 20211006
  2. BEVACIZUMAB [Suspect]
     Active Substance: BEVACIZUMAB
     Indication: Pleural mesothelioma malignant
     Route: 041
     Dates: start: 20211006
  3. PEMETREXED [Suspect]
     Active Substance: PEMETREXED
     Indication: Pleural mesothelioma malignant
     Dosage: 4-6 CYCLES, ON 12/JAN/2022 DATE OF LAST ADMINISTRATION OF PEMETREXED.
     Route: 042
     Dates: start: 20211006
  4. CARBOPLATIN [Suspect]
     Active Substance: CARBOPLATIN
     Indication: Pleural mesothelioma malignant
     Dosage: 4-6 CYCLES, ON12/JAN/2023 DATE OF LAST ADMINISTRATION OF CARBOPLATIN.
     Route: 042
     Dates: start: 20211006

REACTIONS (2)
  - Adrenal insufficiency [Recovered/Resolved with Sequelae]
  - Hypophysitis [Recovered/Resolved with Sequelae]

NARRATIVE: CASE EVENT DATE: 20220601
